FAERS Safety Report 10869856 (Version 1)
Quarter: 2015Q1

REPORT INFORMATION
  Report Type: Spontaneous
  Country: US (occurrence: US)
  Receive Date: 20150226
  Receipt Date: 20150226
  Transmission Date: 20150721
  Serious: Yes (Other)
  Sender: FDA-Public Use
  Company Number: US-AUROBINDO-AUR-APL-2015-01623

PATIENT
  Age: 42 Year
  Sex: Female

DRUGS (1)
  1. OXYCODONE [Suspect]
     Active Substance: OXYCODONE
     Indication: BREAKTHROUGH PAIN
     Dosage: UNK
     Route: 048

REACTIONS (3)
  - Respiratory depression [Recovered/Resolved]
  - Depressed level of consciousness [Recovered/Resolved]
  - Toxicity to various agents [Recovered/Resolved]
